FAERS Safety Report 4297227-9 (Version None)
Quarter: 2004Q1

REPORT INFORMATION
  Report Type: 
  Country: None (occurrence: None)
  Receive Date: 20040217
  Receipt Date: 20040202
  Transmission Date: 20041129
  Serious: Yes (Other)
  Sender: FDA-Public Use
  Company Number: 2004006951

PATIENT
  Age: 57 Year
  Sex: Female
  Weight: 86.1834 kg

DRUGS (2)
  1. ROLAIDS [Suspect]
     Indication: DRUG DEPENDENCE
     Dosage: 20 TABS DAILY ON MOST DAYS, ORAL
     Route: 048
     Dates: start: 20020101
  2. METFORMIN HCL [Concomitant]

REACTIONS (2)
  - DRUG ADDICT [None]
  - INTENTIONAL OVERDOSE [None]
